FAERS Safety Report 23627257 (Version 1)
Quarter: 2024Q1

REPORT INFORMATION
  Report Type: Spontaneous
  Country: US (occurrence: None)
  Receive Date: 20240313
  Receipt Date: 20240313
  Transmission Date: 20240410
  Serious: Yes (Hospitalization)
  Sender: FDA-Public Use
  Company Number: None

PATIENT
  Age: 70 Year
  Sex: Male
  Weight: 94.5 kg

DRUGS (1)
  1. CISPLATIN [Suspect]
     Active Substance: CISPLATIN
     Dates: end: 20240220

REACTIONS (5)
  - Vomiting [None]
  - Diarrhoea [None]
  - Haematemesis [None]
  - Rectal haemorrhage [None]
  - Pain [None]

NARRATIVE: CASE EVENT DATE: 20240303
